FAERS Safety Report 7055945-3 (Version None)
Quarter: 2010Q4

REPORT INFORMATION
  Report Type: 
  Country: None (occurrence: None)
  Receive Date: 20101021
  Receipt Date: 20101015
  Transmission Date: 20110411
  Serious: Yes (Hospitalization)
  Sender: FDA-Public Use
  Company Number: A0787551A

PATIENT
  Age: 61 Year
  Sex: Male
  Weight: 103.6 kg

DRUGS (11)
  1. AVANDIA [Suspect]
     Indication: DIABETES MELLITUS
     Dosage: 8MG PER DAY
     Route: 048
     Dates: start: 20020101, end: 20060101
  2. AVANDARYL [Suspect]
     Dosage: 2TAB PER DAY
     Route: 048
     Dates: start: 20060101, end: 20070708
  3. AMARYL [Concomitant]
  4. VIAGRA [Concomitant]
  5. NASONEX [Concomitant]
  6. CELEBREX [Concomitant]
  7. ALTACE [Concomitant]
  8. GLUCOPHAGE XR [Concomitant]
  9. NEXIUM [Concomitant]
  10. RHINOCORT [Concomitant]
  11. CLARINEX [Concomitant]

REACTIONS (4)
  - CARDIAC FAILURE CONGESTIVE [None]
  - CORONARY ARTERY DISEASE [None]
  - MYOCARDIAL INFARCTION [None]
  - MYOCARDIAL ISCHAEMIA [None]
